FAERS Safety Report 5509434-5 (Version None)
Quarter: 2007Q4

REPORT INFORMATION
  Report Type: 
  Country: None (occurrence: None)
  Receive Date: 20071106
  Receipt Date: 20071025
  Transmission Date: 20080405
  Serious: Yes (Hospitalization)
  Sender: FDA-Public Use
  Company Number: 2007SP003693

PATIENT
  Age: 53 Year
  Sex: Male
  Weight: 69.4003 kg

DRUGS (10)
  1. LUNESTA [Suspect]
     Indication: INSOMNIA
     Dosage: 2 MG;HS;ORAL
     Route: 048
     Dates: start: 20071001, end: 20071001
  2. ACIPHEX [Concomitant]
  3. ANAPROX [Concomitant]
  4. AVANDIA [Concomitant]
  5. ANTI-SMOKING AGENTS [Concomitant]
  6. LANTUS [Concomitant]
  7. NASONEX [Concomitant]
  8. NIZORAL [Concomitant]
  9. NOVOLOG [Concomitant]
  10. SYNTHROID [Concomitant]

REACTIONS (13)
  - ABNORMAL BEHAVIOUR [None]
  - ALTERED STATE OF CONSCIOUSNESS [None]
  - AMNESIA [None]
  - DRUG INEFFECTIVE [None]
  - EYE DISORDER [None]
  - FAECAL INCONTINENCE [None]
  - HEADACHE [None]
  - HYPERGLYCAEMIA [None]
  - HYPOGLYCAEMIA [None]
  - MENTAL STATUS CHANGES [None]
  - PARASOMNIA [None]
  - SINUS BRADYCARDIA [None]
  - TRANSIENT ISCHAEMIC ATTACK [None]
